FAERS Safety Report 16904902 (Version 2)
Quarter: 2019Q4

REPORT INFORMATION
  Report Type: Spontaneous
  Country: FR (occurrence: FR)
  Receive Date: 20191010
  Receipt Date: 20191031
  Transmission Date: 20200122
  Serious: Yes (Other)
  Sender: FDA-Public Use
  Company Number: FR-GLAXOSMITHKLINE-FR2019179685

PATIENT
  Age: 60 Year
  Sex: Male

DRUGS (16)
  1. RHINOCORT [Suspect]
     Active Substance: BUDESONIDE
     Dosage: UNK
     Route: 045
     Dates: start: 20160223
  2. RHINOCORT [Suspect]
     Active Substance: BUDESONIDE
     Indication: SINUSITIS
     Dosage: UNK
     Route: 045
     Dates: start: 20061204
  3. AUGMENTIN [Concomitant]
     Active Substance: AMOXICILLIN\CLAVULANATE POTASSIUM
     Dosage: UNK
     Route: 065
     Dates: start: 20030311
  4. BECOTIDE [Suspect]
     Active Substance: BECLOMETHASONE DIPROPIONATE
     Indication: SINUSITIS
     Dosage: UNK
     Route: 065
     Dates: start: 20020319
  5. SOLUPRED (PREDNISOLONE) [Suspect]
     Active Substance: PREDNISOLONE
     Indication: SINUSITIS
     Dosage: UNK
     Route: 065
     Dates: start: 20020624
  6. SOLUPRED (PREDNISOLONE) [Suspect]
     Active Substance: PREDNISOLONE
     Dosage: UNK
     Route: 065
     Dates: start: 20030204
  7. AUGMENTIN [Concomitant]
     Active Substance: AMOXICILLIN\CLAVULANATE POTASSIUM
     Dosage: UNK
     Route: 065
     Dates: start: 20020624
  8. BECOTIDE [Suspect]
     Active Substance: BECLOMETHASONE DIPROPIONATE
     Dosage: UNK
     Route: 065
     Dates: start: 20030225
  9. MEDROL [Suspect]
     Active Substance: METHYLPREDNISOLONE
     Indication: SINUSITIS
     Dosage: UNK
     Route: 065
     Dates: start: 20030311
  10. PYOSTACINE [Concomitant]
     Active Substance: PRISTINAMYCIN
     Dosage: UNK
     Route: 065
     Dates: start: 20030114
  11. RHINOCORT [Suspect]
     Active Substance: BUDESONIDE
     Dosage: UNK UNK, QD (2 SPRAYS PER DAY)
     Route: 045
     Dates: start: 20140225
  12. AUGMENTIN [Concomitant]
     Active Substance: AMOXICILLIN\CLAVULANATE POTASSIUM
     Dosage: UNK
     Route: 065
     Dates: start: 20030225
  13. PYOSTACINE [Concomitant]
     Active Substance: PRISTINAMYCIN
     Indication: SINUSITIS
     Dosage: UNK
     Route: 065
     Dates: start: 20030204
  14. RHINOCORT [Suspect]
     Active Substance: BUDESONIDE
     Dosage: UNK
     Route: 045
     Dates: start: 20031201
  15. MEDROL [Suspect]
     Active Substance: METHYLPREDNISOLONE
     Dosage: UNK
     Route: 065
     Dates: start: 20030204
  16. AUGMENTIN [Concomitant]
     Active Substance: AMOXICILLIN\CLAVULANATE POTASSIUM
     Indication: SINUSITIS
     Dosage: UNK
     Route: 065
     Dates: start: 20030213

REACTIONS (4)
  - Off label use [Unknown]
  - Osteonecrosis [Unknown]
  - Aortic valve incompetence [Unknown]
  - Intentional product misuse [Unknown]

NARRATIVE: CASE EVENT DATE: 2016
